FAERS Safety Report 7762881-3 (Version None)
Quarter: 2011Q3

REPORT INFORMATION
  Report Type: 
  Country: None (occurrence: None)
  Receive Date: 20110920
  Receipt Date: 20110912
  Transmission Date: 20111222
  Serious: Yes (Hospitalization)
  Sender: FDA-Public Use
  Company Number: GB-VERTEX PHARMACEUTICALS INC.-AE-2011-000390

PATIENT
  Sex: Male
  Weight: 110 kg

DRUGS (12)
  1. VX-950 [Suspect]
     Indication: HEPATITIS C
     Route: 048
     Dates: start: 20110419, end: 20110629
  2. SERTRALINE HYDROCHLORIDE [Concomitant]
     Indication: DEPRESSION
     Route: 048
     Dates: start: 20110201
  3. PEGINTERFERON ALFA-2A [Suspect]
     Indication: HEPATITIS C
     Route: 058
     Dates: start: 20110419, end: 20110629
  4. ZOPICLONE [Concomitant]
     Indication: POOR QUALITY SLEEP
     Route: 048
     Dates: start: 20110517
  5. RIBAVIRIN [Suspect]
     Indication: HEPATITIS C
     Route: 048
     Dates: start: 20110419, end: 20110629
  6. LOPERAMIDE [Concomitant]
     Route: 048
     Dates: start: 20110419
  7. CO-AMOXYCLAV [Concomitant]
     Route: 048
     Dates: start: 20110503
  8. DIHYDROCODEINE BITARTRATE INJ [Concomitant]
     Indication: INTERVERTEBRAL DISC PROTRUSION
     Route: 048
  9. PROPRANOLOL [Concomitant]
     Indication: DEPRESSION
     Route: 048
     Dates: start: 20110601
  10. METHADONE HCL [Concomitant]
     Route: 048
  11. FUROSEMIDE [Concomitant]
     Indication: OEDEMA PERIPHERAL
     Route: 048
  12. METHOCLOPRAMIDE [Concomitant]
     Route: 048

REACTIONS (2)
  - MENTAL DISORDER [None]
  - DEPRESSION [None]
